FAERS Safety Report 6734415-3 (Version None)
Quarter: 2010Q2

REPORT INFORMATION
  Report Type: 
  Country: None (occurrence: None)
  Receive Date: 20100513
  Receipt Date: 20091218
  Transmission Date: 20101027
  Serious: Yes (Other)
  Sender: FDA-Public Use
  Company Number: 2009S1000573

PATIENT
  Sex: Female

DRUGS (1)
  1. CUBICIN [Suspect]
     Dates: start: 20091201

REACTIONS (1)
  - RHABDOMYOLYSIS [None]
